FAERS Safety Report 13705794 (Version 5)
Quarter: 2017Q3

REPORT INFORMATION
  Report Type: Report from Study
  Country: US (occurrence: US)
  Receive Date: 20170630
  Receipt Date: 20170726
  Transmission Date: 20171127
  Serious: Yes (Hospitalization)
  Sender: FDA-Public Use
  Company Number: US-JNJFOC-20170625920

PATIENT
  Age: 16 Year
  Sex: Male
  Weight: 66.2 kg

DRUGS (2)
  1. 5-ASA [Concomitant]
     Active Substance: MESALAMINE
     Route: 048
  2. REMICADE [Suspect]
     Active Substance: INFLIXIMAB
     Indication: INFLAMMATORY BOWEL DISEASE
     Route: 042
     Dates: start: 20151229

REACTIONS (3)
  - Perirectal abscess [Recovered/Resolved]
  - Colitis ulcerative [Recovered/Resolved]
  - Intussusception [Recovered/Resolved]

NARRATIVE: CASE EVENT DATE: 20170603
